FAERS Safety Report 15424214 (Version 2)
Quarter: 2018Q4

REPORT INFORMATION
  Report Type: Report from Study
  Country: US (occurrence: US)
  Receive Date: 20180925
  Receipt Date: 20181109
  Transmission Date: 20190204
  Serious: No
  Sender: FDA-Public Use
  Company Number: PHEH2018US039390

PATIENT
  Age: 30 Year
  Sex: Female

DRUGS (1)
  1. GILENYA [Suspect]
     Active Substance: FINGOLIMOD HYDROCHLORIDE
     Indication: MULTIPLE SCLEROSIS
     Dosage: 0.5 MG, QD
     Route: 048
     Dates: start: 20180907

REACTIONS (4)
  - Fatigue [Recovering/Resolving]
  - Hypoaesthesia [Unknown]
  - Dysarthria [Unknown]
  - Facial nerve disorder [Unknown]

NARRATIVE: CASE EVENT DATE: 20180910
